FAERS Safety Report 7625431-8 (Version None)
Quarter: 2011Q3

REPORT INFORMATION
  Report Type: 
  Country: None (occurrence: None)
  Receive Date: 20110721
  Receipt Date: 20110713
  Transmission Date: 20111222
  Serious: Yes (Hospitalization, Other)
  Sender: FDA-Public Use
  Company Number: US-JNJFOC-20110706670

PATIENT
  Sex: Female
  Weight: 68.04 kg

DRUGS (5)
  1. FENTANYL-100 [Suspect]
     Indication: RADICULAR PAIN
     Route: 062
     Dates: end: 20050101
  2. FENTANYL-100 [Suspect]
     Route: 062
     Dates: end: 20070101
  3. FENTANYL-100 [Suspect]
     Dosage: NDC#: 0781-7240-55
     Route: 062
     Dates: start: 20110601
  4. CHEMOTHERAPY [Concomitant]
     Indication: HEPATITIS C
     Route: 065
  5. FENTANYL-100 [Suspect]
     Route: 062
     Dates: start: 20050101

REACTIONS (3)
  - PRODUCT QUALITY ISSUE [None]
  - NERVE INJURY [None]
  - EXOSTOSIS [None]
